FAERS Safety Report 9594090 (Version 2)
Quarter: 2013Q4

REPORT INFORMATION
  Report Type: Spontaneous
  Country: US (occurrence: US)
  Receive Date: 20131004
  Receipt Date: 20131004
  Transmission Date: 20140711
  Serious: No
  Sender: FDA-Public Use
  Company Number: US-PURDUE-USA-2012-0090384

PATIENT
  Sex: Female

DRUGS (1)
  1. BUTRANS [Suspect]
     Indication: PAIN
     Dosage: 10 MCG/HR, UNK
     Route: 062

REACTIONS (7)
  - Drug administered at inappropriate site [Not Recovered/Not Resolved]
  - Wrong technique in drug usage process [Unknown]
  - Application site pain [Recovered/Resolved]
  - Pain [Recovered/Resolved]
  - Application site irritation [Unknown]
  - Product adhesion issue [Unknown]
  - Application site rash [Recovered/Resolved]
